FAERS Safety Report 10182121 (Version 1)
Quarter: 2014Q2

REPORT INFORMATION
  Report Type: Report from Study
  Country: US (occurrence: US)
  Receive Date: 20140520
  Receipt Date: 20140520
  Transmission Date: 20141212
  Serious: Yes (Other)
  Sender: FDA-Public Use
  Company Number: US-ROCHE-1400902

PATIENT
  Sex: 0

DRUGS (2)
  1. BEVACIZUMAB [Suspect]
     Indication: NEOPLASM MALIGNANT
     Dosage: ONLY ON DAY 1 OF EACH CYCLE
     Route: 065
  2. TEMSIROLIMUS [Suspect]
     Indication: NEOPLASM MALIGNANT
     Dosage: ON DAYS 1, 8 AND 15
     Route: 065

REACTIONS (7)
  - Thrombocytopenia [Unknown]
  - Fatigue [Unknown]
  - Mucosal inflammation [Unknown]
  - Aspartate aminotransferase increased [Unknown]
  - Neutropenia [Unknown]
  - Hypertension [Unknown]
  - Hypercholesterolaemia [Unknown]
